FAERS Safety Report 7796092 (Version 4)
Quarter: 2014Q1

REPORT INFORMATION
  Report Type: Report from Study
  Country: JP (occurrence: JP)
  Receive Date: 20110202
  Receipt Date: 20140218
  Transmission Date: 20141002
  Serious: Yes (Life-Threatening, Hospitalization, Other)
  Sender: FDA-Public Use
  Company Number: JP-JNJFOC-20110107050

PATIENT
  Age: 51 Year
  Sex: Male
  Weight: 110 kg

DRUGS (9)
  1. REMICADE [Suspect]
     Indication: PSORIASIS
     Route: 042
     Dates: start: 20100309
  2. REMICADE [Suspect]
     Indication: PSORIASIS
     Route: 042
     Dates: start: 20100323
  3. REMICADE [Suspect]
     Indication: PSORIASIS
     Route: 042
     Dates: start: 20100617
  4. REMICADE [Suspect]
     Indication: PSORIASIS
     Dosage: TOTAL 5 INFUSION
     Route: 042
     Dates: start: 20100913
  5. REMICADE [Suspect]
     Indication: PSORIASIS
     Route: 042
     Dates: start: 20100417
  6. STELARA [Suspect]
     Indication: PSORIASIS
     Route: 058
     Dates: start: 200907, end: 200910
  7. CICLOSPORIN [Suspect]
     Indication: PSORIASIS
     Route: 065
  8. ETRETINATE [Concomitant]
     Indication: PSORIASIS
     Route: 048
  9. BIOFERMIN [Concomitant]
     Indication: GASTROINTESTINAL DISORDER
     Route: 048
     Dates: start: 20100826, end: 20100909

REACTIONS (1)
  - Rectosigmoid cancer metastatic [Unknown]
